FAERS Safety Report 4440927-8 (Version None)
Quarter: 2004Q3

REPORT INFORMATION
  Report Type: 
  Country: None (occurrence: None)
  Receive Date: 20040728
  Receipt Date: 20040406
  Transmission Date: 20050211
  Serious: No
  Sender: FDA-Public Use
  Company Number: USA040464232

PATIENT
  Age: 4 Year
  Sex: Male

DRUGS (2)
  1. STRATTERA [Suspect]
  2. SUDAFED 12 HOUR [Concomitant]

REACTIONS (3)
  - DRUG INTERACTION [None]
  - EXCITABILITY [None]
  - NASOPHARYNGITIS [None]
